FAERS Safety Report 4501749-2 (Version None)
Quarter: 2004Q4

REPORT INFORMATION
  Report Type: 
  Country: None (occurrence: None)
  Receive Date: 20041115
  Receipt Date: 20041115
  Transmission Date: 20050328
  Serious: No
  Sender: FDA-Public Use
  Company Number: None

PATIENT
  Age: 80 Year
  Sex: Male

DRUGS (12)
  1. LEVAQUIN [Suspect]
     Indication: CELLULITIS
     Dosage: 500  MG    X1    ORAL
     Route: 048
     Dates: start: 20041101, end: 20041101
  2. IMDUR [Concomitant]
  3. LASIX [Concomitant]
  4. KCL TAB [Concomitant]
  5. ALLEGRA [Concomitant]
  6. LIPITOR [Concomitant]
  7. GLUCOTROL [Concomitant]
  8. NORVASC [Concomitant]
  9. PRINIVIL [Concomitant]
  10. NEURONTIN [Concomitant]
  11. OXYCONTIN [Concomitant]
  12. OXYCODONE AND ACETAMINOPHEN [Concomitant]

REACTIONS (1)
  - URINARY RETENTION [None]
